FAERS Safety Report 22034651 (Version 2)
Quarter: 2023Q2

REPORT INFORMATION
  Report Type: Spontaneous
  Country: US (occurrence: US)
  Receive Date: 20230224
  Receipt Date: 20230413
  Transmission Date: 20230722
  Serious: No
  Sender: FDA-Public Use
  Company Number: US-PFIZER INC-202300078839

PATIENT
  Age: 64 Year
  Sex: Female
  Weight: 126.55 kg

DRUGS (1)
  1. PAXLOVID [Suspect]
     Active Substance: NIRMATRELVIR\RITONAVIR
     Indication: COVID-19 treatment
     Dosage: [PF-07321332 300 MG]/[RITONAVIR 100 MG]; 2X/DAY
     Route: 048
     Dates: start: 20230220, end: 20230221

REACTIONS (5)
  - Heart rate increased [Recovered/Resolved]
  - Insomnia [Recovered/Resolved]
  - Dysgeusia [Recovered/Resolved]
  - Dry mouth [Recovered/Resolved]
  - Urine output decreased [Recovered/Resolved]

NARRATIVE: CASE EVENT DATE: 20230220
